FAERS Safety Report 10263886 (Version 1)
Quarter: 2014Q2

REPORT INFORMATION
  Report Type: Other
  Country: DE (occurrence: DE)
  Receive Date: 20140627
  Receipt Date: 20140627
  Transmission Date: 20141212
  Serious: Yes (Hospitalization)
  Sender: FDA-Public Use
  Company Number: DE-LUPIN PHARMACEUTICALS INC.-E2B_00000970

PATIENT
  Age: 51 Year
  Sex: Male
  Weight: 124 kg

DRUGS (5)
  1. SIMVASTATIN [Suspect]
     Indication: HYPERCHOLESTEROLAEMIA
     Route: 048
     Dates: start: 201206, end: 201212
  2. METOPROLOL [Concomitant]
     Indication: HYPERTENSION
     Route: 048
  3. ASS [Concomitant]
     Indication: CORONARY ARTERY DISEASE
     Route: 048
  4. VALSARTAN [Concomitant]
     Indication: CORONARY ARTERY DISEASE
     Route: 048
  5. OMACOR [Concomitant]
     Indication: HYPERTRIGLYCERIDAEMIA
     Route: 048
     Dates: start: 20120828

REACTIONS (1)
  - Rhabdomyolysis [Recovered/Resolved]
